FAERS Safety Report 21411121 (Version 1)
Quarter: 2022Q4

REPORT INFORMATION
  Report Type: Spontaneous
  Country: JP (occurrence: JP)
  Receive Date: 20221005
  Receipt Date: 20221005
  Transmission Date: 20230113
  Serious: Yes (Other)
  Sender: FDA-Public Use
  Company Number: JP-PFIZER INC-PV202200072399

PATIENT

DRUGS (1)
  1. GENOTROPIN [Suspect]
     Active Substance: SOMATROPIN
     Dosage: 5 TIMES A WEEK
     Route: 058

REACTIONS (3)
  - Coronavirus infection [Unknown]
  - Pyrexia [Unknown]
  - Product dose omission issue [Unknown]
